FAERS Safety Report 6703868-9 (Version None)
Quarter: 2010Q2

REPORT INFORMATION
  Report Type: 
  Country: None (occurrence: None)
  Receive Date: 20100430
  Receipt Date: 20100421
  Transmission Date: 20101027
  Serious: Yes (Other)
  Sender: FDA-Public Use
  Company Number: US-JNJFOC-20100207954

PATIENT
  Sex: Female
  Weight: 90.72 kg

DRUGS (10)
  1. REMICADE [Suspect]
     Indication: RHEUMATOID ARTHRITIS
     Route: 042
  2. REMICADE [Suspect]
     Route: 042
  3. OMEPRAZOLE [Concomitant]
  4. CLARITIN [Concomitant]
     Indication: SEASONAL ALLERGY
  5. CYCLOBENZAPRINE [Concomitant]
     Indication: MUSCLE RELAXANT THERAPY
  6. CITALOPRAM HYDROBROMIDE [Concomitant]
     Indication: DEPRESSION
  7. ZEMPLAR [Concomitant]
     Indication: HYPERPARATHYROIDISM SECONDARY
     Dosage: DOSE: 1MCG
  8. DARVOCET [Concomitant]
     Indication: PAIN
  9. PROCRIT [Concomitant]
     Indication: ANAEMIA
     Dosage: DOSE 20,000 UNITS EVERY 4 WEEKS
  10. CYCLOSPORINE [Concomitant]

REACTIONS (1)
  - RENAL DISORDER [None]
